FAERS Safety Report 22592794 (Version 1)
Quarter: 2023Q2

REPORT INFORMATION
  Report Type: Spontaneous
  Country: US (occurrence: US)
  Receive Date: 20230613
  Receipt Date: 20230613
  Transmission Date: 20230721
  Serious: Yes (Other)
  Sender: FDA-Public Use
  Company Number: US-Shilpa Medicare Limited-SML-US-2023-00767

PATIENT
  Age: 34 Year
  Sex: Female

DRUGS (3)
  1. ERLOTINIB [Suspect]
     Active Substance: ERLOTINIB
     Indication: Non-small cell lung cancer stage IIIB
     Route: 065
  2. PEMETREXED [Suspect]
     Active Substance: PEMETREXED
     Indication: Non-small cell lung cancer stage IIIB
     Route: 065
  3. CISPLATIN [Suspect]
     Active Substance: CISPLATIN
     Indication: Non-small cell lung cancer stage IIIB
     Route: 065

REACTIONS (15)
  - Rash [Unknown]
  - Diarrhoea [Unknown]
  - Dry skin [Unknown]
  - Fatigue [Unknown]
  - Abdominal pain [Unknown]
  - Aspartate aminotransferase increased [Unknown]
  - Disease recurrence [Unknown]
  - Nausea [Unknown]
  - Leukopenia [Unknown]
  - Neutropenia [Unknown]
  - Oesophagitis [Unknown]
  - Hypocalcaemia [Unknown]
  - Alanine aminotransferase increased [Recovered/Resolved]
  - Cough [Unknown]
  - Dyspnoea [Unknown]
